FAERS Safety Report 8018745-3 (Version None)
Quarter: 2012Q1

REPORT INFORMATION
  Report Type: 
  Country: None (occurrence: None)
  Receive Date: 20120103
  Receipt Date: 20120103
  Transmission Date: 20120608
  Serious: Yes (Other)
  Sender: FDA-Public Use
  Company Number: None

PATIENT
  Sex: Female
  Weight: 45.812 kg

DRUGS (2)
  1. AMPHETAMINE AND DEXTROAMPHETAMINE SALTS [Concomitant]
     Dosage: 20 MG
     Route: 048
     Dates: start: 20111102, end: 20111231
  2. AMPHETAMINE AND DEXTROAMPHETAMINE SALTS [Suspect]
     Indication: ATTENTION DEFICIT/HYPERACTIVITY DISORDER
     Dosage: 5MG
     Route: 048
     Dates: start: 20111102, end: 20111231

REACTIONS (6)
  - DRUG INEFFECTIVE [None]
  - PRODUCT SUBSTITUTION ISSUE [None]
  - DISTURBANCE IN ATTENTION [None]
  - MYALGIA [None]
  - FATIGUE [None]
  - ANXIETY [None]
